FAERS Safety Report 23579568 (Version 1)
Quarter: 2024Q1

REPORT INFORMATION
  Report Type: Spontaneous
  Country: US (occurrence: US)
  Receive Date: 20240229
  Receipt Date: 20240229
  Transmission Date: 20240410
  Serious: No
  Sender: FDA-Public Use
  Company Number: US-Jiangsu Hengrui Medicine Co., Ltd.-2153839

PATIENT
  Age: 35 Year
  Sex: Female

DRUGS (1)
  1. IODIXANOL [Suspect]
     Active Substance: IODIXANOL

REACTIONS (1)
  - Rash [Unknown]
